FAERS Safety Report 17982039 (Version 3)
Quarter: 2020Q4

REPORT INFORMATION
  Report Type: Spontaneous
  Country: US (occurrence: US)
  Receive Date: 20200706
  Receipt Date: 20201222
  Transmission Date: 20210113
  Serious: Yes (Other)
  Sender: FDA-Public Use
  Company Number: US-GILEAD-2020-0476129

PATIENT
  Age: 33 Year
  Sex: Male

DRUGS (3)
  1. VIREAD [Suspect]
     Active Substance: TENOFOVIR DISOPROXIL FUMARATE
     Indication: HIV INFECTION
     Dosage: UNK
     Route: 048
     Dates: start: 201609, end: 201809
  2. TRUVADA [Suspect]
     Active Substance: EMTRICITABINE\TENOFOVIR DISOPROXIL FUMARATE
     Indication: HIV INFECTION
     Dosage: UNK
     Route: 048
     Dates: start: 20161005, end: 20190501
  3. DESCOVY [Concomitant]
     Active Substance: EMTRICITABINE\TENOFOVIR ALAFENAMIDE FUMARATE

REACTIONS (11)
  - Bone density abnormal [Not Recovered/Not Resolved]
  - Skeletal injury [Unknown]
  - Tooth loss [Unknown]
  - Osteonecrosis [Unknown]
  - Chronic kidney disease [Unknown]
  - Nephropathy [Not Recovered/Not Resolved]
  - Fracture [Unknown]
  - Renal failure [Unknown]
  - Bone loss [Unknown]
  - Renal injury [Unknown]
  - Bone density decreased [Unknown]

NARRATIVE: CASE EVENT DATE: 20170301
